FAERS Safety Report 11457849 (Version 1)
Quarter: 2015Q3

REPORT INFORMATION
  Report Type: Spontaneous
  Country: US (occurrence: None)
  Receive Date: 20150903
  Receipt Date: 20150903
  Transmission Date: 20151125
  Serious: No
  Sender: FDA-Public Use
  Company Number: None

PATIENT
  Age: 52 Year
  Sex: Female

DRUGS (6)
  1. LIPITOR [Concomitant]
     Active Substance: ATORVASTATIN CALCIUM
  2. PRO-BIOTIC [Concomitant]
  3. VICTOZA [Suspect]
     Active Substance: LIRAGLUTIDE
     Indication: TYPE 2 DIABETES MELLITUS
     Route: 058
     Dates: start: 20150807, end: 20150830
  4. GLIPIZIDE. [Concomitant]
     Active Substance: GLIPIZIDE
  5. INVOKANA [Concomitant]
     Active Substance: CANAGLIFLOZIN
  6. LISINOPRIL. [Concomitant]
     Active Substance: LISINOPRIL

REACTIONS (3)
  - Extrasystoles [None]
  - Palpitations [None]
  - Heart rate irregular [None]
